FAERS Safety Report 9756777 (Version 1)
Quarter: 2013Q4

REPORT INFORMATION
  Report Type: Spontaneous
  Country: CN (occurrence: CN)
  Receive Date: 20131213
  Receipt Date: 20131213
  Transmission Date: 20140711
  Serious: Yes (Death, Hospitalization, Other)
  Sender: FDA-Public Use
  Company Number: CN-PFIZER INC-2013357644

PATIENT
  Age: 8 Decade
  Sex: 0

DRUGS (2)
  1. CELEBREX [Suspect]
     Indication: PAIN
     Dosage: 2TABLETS PER TIME, 2X/DAY
     Route: 048
  2. MORPHINE [Concomitant]

REACTIONS (3)
  - Large intestine perforation [Fatal]
  - Septic shock [Fatal]
  - Abdominal infection [Fatal]
